FAERS Safety Report 13474095 (Version 1)
Quarter: 2017Q2

REPORT INFORMATION
  Report Type: Spontaneous
  Country: US (occurrence: US)
  Receive Date: 20170424
  Receipt Date: 20170424
  Transmission Date: 20170830
  Serious: No
  Sender: FDA-Public Use
  Company Number: US-SA-2016SA100727

PATIENT

DRUGS (1)
  1. ENOXAPARIN SODIUM - WINTHROP [Suspect]
     Active Substance: ENOXAPARIN SODIUM
     Route: 063
     Dates: start: 201603

REACTIONS (2)
  - Exposure during breast feeding [Unknown]
  - Gastrointestinal disorder [Unknown]
